FAERS Safety Report 13767150 (Version 1)
Quarter: 2017Q3

REPORT INFORMATION
  Report Type: Spontaneous
  Country: US (occurrence: US)
  Receive Date: 20170719
  Receipt Date: 20170719
  Transmission Date: 20171127
  Serious: Yes (Hospitalization)
  Sender: FDA-Public Use
  Company Number: None

PATIENT
  Age: 46 Year
  Sex: Male
  Weight: 90.26 kg

DRUGS (1)
  1. DOXYCYCLINE. [Suspect]
     Active Substance: DOXYCYCLINE
     Indication: CELLULITIS
     Route: 048
     Dates: start: 20170622, end: 20170702

REACTIONS (3)
  - Tachycardia [None]
  - Mouth swelling [None]
  - Stevens-Johnson syndrome [None]

NARRATIVE: CASE EVENT DATE: 20170703
